FAERS Safety Report 16278205 (Version 8)
Quarter: 2020Q2

REPORT INFORMATION
  Report Type: Report from Study
  Country: FR (occurrence: FR)
  Receive Date: 20190506
  Receipt Date: 20200629
  Transmission Date: 20200713
  Serious: Yes (Death, Life-Threatening, Hospitalization)
  Sender: FDA-Public Use
  Company Number: PHHO2019FR004647

PATIENT
  Age: 44 Year
  Sex: Female
  Weight: 62 kg

DRUGS (4)
  1. PREDNISONE. [Suspect]
     Active Substance: PREDNISONE
     Indication: PRODUCT USED FOR UNKNOWN INDICATION
     Dosage: UNK
     Route: 065
  2. SOLUPRED [Concomitant]
     Indication: PRODUCT USED FOR UNKNOWN INDICATION
     Dosage: 30 MG, QD
     Route: 048
     Dates: start: 20181228, end: 20190426
  3. EXTRACORPOREAL PHOTOPHERESIS [Suspect]
     Active Substance: UNSPECIFIED INGREDIENT
     Indication: CHRONIC GRAFT VERSUS HOST DISEASE
     Dosage: UNK, BIW
     Route: 050
     Dates: start: 20190405, end: 20190426
  4. MYCOPHENOLATE MOFETIL. [Suspect]
     Active Substance: MYCOPHENOLATE MOFETIL
     Indication: CHRONIC GRAFT VERSUS HOST DISEASE
     Dosage: 1500 MG, QD
     Route: 048
     Dates: start: 20190110, end: 20190426

REACTIONS (2)
  - Staphylococcal sepsis [Fatal]
  - Cardiogenic shock [Fatal]

NARRATIVE: CASE EVENT DATE: 20190426
